FAERS Safety Report 13934573 (Version 1)
Quarter: 2017Q3

REPORT INFORMATION
  Report Type: Spontaneous
  Country: US (occurrence: US)
  Receive Date: 20170905
  Receipt Date: 20170905
  Transmission Date: 20171127
  Serious: No
  Sender: FDA-Public Use
  Company Number: US-TEVA-723999ACC

PATIENT
  Sex: Female

DRUGS (1)
  1. CAZIANT [Suspect]
     Active Substance: DESOGESTREL\ETHINYL ESTRADIOL
     Route: 065

REACTIONS (2)
  - Pruritus [Unknown]
  - Rash [Unknown]
